FAERS Safety Report 9125263 (Version 1)
Quarter: 2013Q1

REPORT INFORMATION
  Report Type: Spontaneous
  Country: BE (occurrence: BE)
  Receive Date: 20130227
  Receipt Date: 20130227
  Transmission Date: 20140127
  Serious: Yes (Other)
  Sender: FDA-Public Use
  Company Number: BE-ASTRAZENECA-2013SE12164

PATIENT
  Age: 78 Year
  Sex: Male
  Weight: 64 kg

DRUGS (6)
  1. CRESTOR [Suspect]
     Indication: HYPERCHOLESTEROLAEMIA
     Route: 048
     Dates: start: 2012
  2. PRAREDUCT [Concomitant]
     Indication: HYPERCHOLESTEROLAEMIA
     Route: 048
     Dates: start: 2005, end: 2011
  3. ATACAND [Concomitant]
     Indication: HYPERTENSION
     Dosage: 1X16+12,5MG DAILY
     Route: 048
     Dates: start: 2005
  4. NOBITEN [Concomitant]
     Indication: HYPERTENSION
     Route: 048
     Dates: start: 2005
  5. ASAFLOW [Concomitant]
     Indication: HYPERTENSION
     Route: 048
     Dates: start: 2005
  6. EZETROL [Concomitant]
     Indication: HYPERCHOLESTEROLAEMIA
     Route: 048
     Dates: start: 2005

REACTIONS (1)
  - Infarction [Unknown]
